FAERS Safety Report 4730693-0 (Version None)
Quarter: 2005Q3

REPORT INFORMATION
  Report Type: 
  Country: None (occurrence: None)
  Receive Date: 20050725
  Receipt Date: 20050225
  Transmission Date: 20060218
  Serious: No
  Sender: FDA-Public Use
  Company Number: USA050291774

PATIENT
  Sex: Male

DRUGS (4)
  1. STRATTERA [Suspect]
     Indication: ATTENTION DEFICIT/HYPERACTIVITY DISORDER
     Dosage: 25 MG/2 DAY
     Dates: start: 20030101
  2. FLUOXETINE [Concomitant]
  3. ABILIFY [Concomitant]
  4. PROVIGIL [Concomitant]

REACTIONS (3)
  - CHEST PAIN [None]
  - COUGH [None]
  - NASOPHARYNGITIS [None]
